FAERS Safety Report 7332624-6 (Version None)
Quarter: 2011Q1

REPORT INFORMATION
  Report Type: 
  Country: None (occurrence: None)
  Receive Date: 20110223
  Receipt Date: 20110210
  Transmission Date: 20110831
  Serious: Yes (Hospitalization)
  Sender: FDA-Public Use
  Company Number: UTC-005239

PATIENT
  Age: 67 Year
  Sex: Female
  Weight: 82 kg

DRUGS (4)
  1. VOLUVEN [Concomitant]
  2. REMODULIN [Suspect]
     Indication: PULMONARY HYPERTENSION
     Dosage: 18000 UG/KG (12.5 UG/KG,1 IN 1 MIN),SUBCUTANEOUS
     Route: 058
  3. PANTOPRAZOLE SODIUM [Concomitant]
  4. VENDAL [Concomitant]

REACTIONS (1)
  - RENAL FAILURE ACUTE [None]
